FAERS Safety Report 17419487 (Version 1)
Quarter: 2020Q1

REPORT INFORMATION
  Report Type: Spontaneous
  Country: US (occurrence: US)
  Receive Date: 20200214
  Receipt Date: 20200214
  Transmission Date: 20200409
  Serious: No
  Sender: FDA-Public Use
  Company Number: None

PATIENT
  Age: 39 Year
  Sex: Male

DRUGS (1)
  1. IRON SUCROSE [Suspect]
     Active Substance: IRON SUCROSE
     Indication: IRON DEFICIENCY
     Dosage: ?          OTHER FREQUENCY:ONCE;?
     Route: 041
     Dates: start: 20200206, end: 20200206

REACTIONS (2)
  - Pain in extremity [None]
  - Thrombophlebitis superficial [None]

NARRATIVE: CASE EVENT DATE: 20200206
